FAERS Safety Report 7631337-0 (Version None)
Quarter: 2011Q3

REPORT INFORMATION
  Report Type: 
  Country: None (occurrence: None)
  Receive Date: 20110725
  Receipt Date: 20110715
  Transmission Date: 20111222
  Serious: Yes (Hospitalization, Other)
  Sender: FDA-Public Use
  Company Number: FR-AMGEN-FRASP2011035645

PATIENT
  Age: 45 Year
  Sex: Male

DRUGS (3)
  1. HUMIRA [Suspect]
     Indication: PRODUCT USED FOR UNKNOWN INDICATION
     Dosage: 1 DOSAGE FORM IN  2 WEEKS
     Route: 058
     Dates: start: 20090501, end: 20110401
  2. ENBREL [Suspect]
     Indication: PSORIATIC ARTHROPATHY
     Dosage: 50 MG, WEEKLY, 4 CYCLES OF 6 MONTHS
     Route: 058
     Dates: start: 20060201, end: 20090401
  3. METHOTREXATE [Suspect]
     Indication: PRODUCT USED FOR UNKNOWN INDICATION
     Dosage: 7.5 TO 10 MG PER WEEK (CUMULATED DOSE SUPERIOR TO 3 G)
     Dates: start: 20000101, end: 20060201

REACTIONS (2)
  - PSORIATIC ARTHROPATHY [None]
  - MALIGNANT MELANOMA IN SITU [None]
